FAERS Safety Report 8385138-9 (Version None)
Quarter: 2012Q2

REPORT INFORMATION
  Report Type: 
  Country: None (occurrence: None)
  Receive Date: 20120524
  Receipt Date: 20120516
  Transmission Date: 20120825
  Serious: Yes (Hospitalization)
  Sender: FDA-Public Use
  Company Number: JP-BAXTER-2012BAX006400

PATIENT
  Age: 55 Year
  Sex: Female

DRUGS (2)
  1. CYCLOPHOSPHAMIDE [Suspect]
     Indication: METASTASES TO LIVER
     Route: 048
     Dates: start: 20100201, end: 20101201
  2. CAPECITABINE [Suspect]
     Indication: METASTASES TO LIVER
     Route: 048
     Dates: start: 20070801, end: 20101201

REACTIONS (1)
  - LEUKOENCEPHALOPATHY [None]
